FAERS Safety Report 13662196 (Version 2)
Quarter: 2017Q3

REPORT INFORMATION
  Report Type: Spontaneous
  Country: FR (occurrence: FR)
  Receive Date: 20170616
  Receipt Date: 20170914
  Transmission Date: 20171127
  Serious: Yes (Other)
  Sender: FDA-Public Use
  Company Number: PHHY2017FR087735

PATIENT
  Age: 70 Year
  Sex: Female

DRUGS (1)
  1. FORADIL [Suspect]
     Active Substance: FORMOTEROL FUMARATE
     Indication: PRODUCT USED FOR UNKNOWN INDICATION
     Dosage: 12 UG, UNK
     Route: 055

REACTIONS (2)
  - Device malfunction [Unknown]
  - Foreign body aspiration [Unknown]
